FAERS Safety Report 6451404 (Version 2)
Quarter: 2015Q4

REPORT INFORMATION
  Report Type: Spontaneous
  Country: GB (occurrence: GB)
  Receive Date: 20071023
  Receipt Date: 20151019
  Transmission Date: 20160305
  Serious: Yes (Death)
  Sender: FDA-Public Use
  Company Number: GB-RANBAXY-2007RR-05235

PATIENT

DRUGS (2)
  1. DIAZEPAM TABLETS [Suspect]
     Active Substance: DIAZEPAM
     Indication: PRODUCT USED FOR UNKNOWN INDICATION
     Route: 065
  2. SERTRALINE [Suspect]
     Active Substance: SERTRALINE HYDROCHLORIDE
     Indication: PRODUCT USED FOR UNKNOWN INDICATION
     Dosage: BOLUS OVERDOSE
     Route: 065

REACTIONS (3)
  - Completed suicide [Fatal]
  - Drowning [Fatal]
  - Overdose [Fatal]

NARRATIVE: CASE EVENT DATE: 20060830
